FAERS Safety Report 16925257 (Version 1)
Quarter: 2019Q4

REPORT INFORMATION
  Report Type: Spontaneous
  Country: US (occurrence: US)
  Receive Date: 20190823
  Receipt Date: 20190823
  Transmission Date: 20200122
  Serious: No
  Sender: FDA-Public Use
  Company Number: None

PATIENT

DRUGS (17)
  1. LINZESS [Concomitant]
     Active Substance: LINACLOTIDE
  2. HUMIRA [Suspect]
     Active Substance: ADALIMUMAB
     Indication: FIBROMYALGIA
     Route: 058
  3. PANTOPRAZOLE [Concomitant]
     Active Substance: PANTOPRAZOLE
  4. DIVALOPROEX [Concomitant]
  5. BACLOFEN. [Concomitant]
     Active Substance: BACLOFEN
  6. METFORMIN [Concomitant]
     Active Substance: METFORMIN HYDROCHLORIDE
  7. CEPHALEXIN. [Concomitant]
     Active Substance: CEPHALEXIN
  8. FUROSEMIDE. [Concomitant]
     Active Substance: FUROSEMIDE
  9. ANUCORT HC [Concomitant]
  10. ZOLPIDEM [Concomitant]
     Active Substance: ZOLPIDEM TARTRATE
  11. TRAZODONE [Concomitant]
     Active Substance: TRAZODONE HYDROCHLORIDE
  12. DILVALOPROEX [Concomitant]
  13. FLUCONAZOLE. [Concomitant]
     Active Substance: FLUCONAZOLE
  14. ARIPRAZOLE [Concomitant]
     Active Substance: ARIPIPRAZOLE
  15. METHOTREXATE. [Concomitant]
     Active Substance: METHOTREXATE
  16. MONTEIUKAST [Concomitant]
  17. ATROVASTATIN [Concomitant]
     Active Substance: ATORVASTATIN CALCIUM

REACTIONS (1)
  - Pneumonia [None]
